FAERS Safety Report 4516717-4 (Version None)
Quarter: 2004Q4

REPORT INFORMATION
  Report Type: 
  Country: None (occurrence: None)
  Receive Date: 20041005
  Receipt Date: 20040311
  Transmission Date: 20050328
  Serious: Yes (Other)
  Sender: FDA-Public Use
  Company Number: 04-000195

PATIENT
  Age: 34 Year
  Sex: Female

DRUGS (4)
  1. DORYX [Suspect]
     Indication: ACNE
     Dosage: 100 MG, BID ; 100 MG, QD : ORAL
     Route: 048
     Dates: start: 20010701, end: 20020701
  2. DORYX [Suspect]
     Indication: ACNE
     Dosage: 100 MG, BID ; 100 MG, QD : ORAL
     Route: 048
     Dates: start: 20020701
  3. ALDACTONE [Concomitant]
  4. BUSPAR [Concomitant]

REACTIONS (1)
  - PERICARDITIS [None]
